FAERS Safety Report 12578621 (Version 1)
Quarter: 2016Q3

REPORT INFORMATION
  Report Type: Spontaneous
  Country: US (occurrence: None)
  Receive Date: 20160720
  Receipt Date: 20160720
  Transmission Date: 20161109
  Serious: Yes (Other)
  Sender: FDA-Public Use
  Company Number: None

PATIENT
  Age: 8 Year
  Sex: Male
  Weight: 24.5 kg

DRUGS (3)
  1. OCTREOTIDE INJECTION, 1 MG/ML [Suspect]
     Active Substance: OCTREOTIDE
     Indication: PANCREATIC INJURY
     Route: 040
     Dates: start: 20160719, end: 20160719
  2. FAMOTIDINE. [Concomitant]
     Active Substance: FAMOTIDINE
  3. KETOROLAC [Concomitant]
     Active Substance: KETOROLAC\KETOROLAC TROMETHAMINE

REACTIONS (5)
  - Infusion related reaction [None]
  - Pain [None]
  - Heart rate increased [None]
  - Blood glucose increased [None]
  - Hyperhidrosis [None]

NARRATIVE: CASE EVENT DATE: 20160719
